FAERS Safety Report 9163323 (Version 2)
Quarter: 2013Q2

REPORT INFORMATION
  Report Type: Report from Study
  Country: JP (occurrence: JP)
  Receive Date: 20130314
  Receipt Date: 20130527
  Transmission Date: 20140414
  Serious: Yes (Death, Hospitalization)
  Sender: FDA-Public Use
  Company Number: JP-ROCHE-1200917

PATIENT
  Age: 58 Year
  Sex: Female
  Weight: 31 kg

DRUGS (6)
  1. OMALIZUMAB [Suspect]
     Indication: ASTHMA
     Route: 058
     Dates: start: 20100513
  2. OMALIZUMAB [Suspect]
     Route: 058
     Dates: start: 20100610, end: 20100610
  3. QVAR [Concomitant]
     Route: 065
     Dates: start: 20080502, end: 20100121
  4. SINGULAIR [Concomitant]
     Route: 065
     Dates: start: 20020811
  5. THEO-DUR [Concomitant]
     Route: 065
     Dates: start: 20020811
  6. ADOAIR [Concomitant]
     Route: 065
     Dates: start: 20100122

REACTIONS (2)
  - Pneumothorax [Fatal]
  - Status asthmaticus [Fatal]
